FAERS Safety Report 10045883 (Version 1)
Quarter: 2014Q1

REPORT INFORMATION
  Report Type: Spontaneous
  Country: SE (occurrence: SE)
  Receive Date: 20140329
  Receipt Date: 20140329
  Transmission Date: 20141002
  Serious: Yes (Hospitalization)
  Sender: FDA-Public Use
  Company Number: SE-ROCHE-1371497

PATIENT
  Age: 95 Year
  Sex: Male

DRUGS (1)
  1. TAMIFLU [Suspect]
     Indication: PRODUCT USED FOR UNKNOWN INDICATION
     Route: 065

REACTIONS (1)
  - Hallucination [Unknown]
